FAERS Safety Report 21359939 (Version 7)
Quarter: 2024Q2

REPORT INFORMATION
  Report Type: Spontaneous
  Country: US (occurrence: US)
  Receive Date: 20220921
  Receipt Date: 20240613
  Transmission Date: 20240716
  Serious: Yes (Other)
  Sender: FDA-Public Use
  Company Number: US-PFIZER INC-PV202200067661

PATIENT
  Age: 72 Year
  Sex: Female

DRUGS (3)
  1. XELJANZ [Suspect]
     Active Substance: TOFACITINIB CITRATE
     Dosage: 2 TABLETS A DAY
  2. XELJANZ [Suspect]
     Active Substance: TOFACITINIB CITRATE
     Dosage: 5 MG, DAILY (1 TABLET A DAY INSTEAD OF 2 TABLETS)
  3. CYMBALTA [Concomitant]
     Active Substance: DULOXETINE HYDROCHLORIDE

REACTIONS (11)
  - Glaucoma [Unknown]
  - Spinal fracture [Unknown]
  - Mobility decreased [Unknown]
  - Nasal disorder [Unknown]
  - Confusional state [Unknown]
  - Memory impairment [Unknown]
  - Nervousness [Unknown]
  - Cognitive disorder [Unknown]
  - Amnesia [Unknown]
  - Intentional product misuse [Unknown]
  - Product dose omission issue [Unknown]
